FAERS Safety Report 7081807 (Version 1)
Quarter: 2020Q3

REPORT INFORMATION
  Report Type: Report from Study
  Country: US (occurrence: US)
  Receive Date: 20090814
  Receipt Date: 20090814
  Transmission Date: 20201105
  Serious: Yes (Other)
  Sender: FDA-Public Use
  Company Number: US-ROCHE-639694

PATIENT
  Age: 83 Year
  Sex: Male
  Weight: 64.4 kg

DRUGS (9)
  1. VEMURAFENIB. [Suspect]
     Active Substance: VEMURAFENIB
     Route: 048
     Dates: start: 20090519, end: 20090619
  2. CLOBETASOL PROPIONATE. [Concomitant]
     Active Substance: CLOBETASOL PROPIONATE
     Indication: PSORIASIS
     Route: 061
  3. ASA [Concomitant]
     Active Substance: ASPIRIN
     Indication: CEREBROVASCULAR ACCIDENT PROPHYLAXIS
     Dosage: FREQUENCY: QD
     Dates: start: 20090421
  4. VEMURAFENIB. [Suspect]
     Active Substance: VEMURAFENIB
     Route: 048
     Dates: start: 20090421
  5. VEMURAFENIB. [Suspect]
     Active Substance: VEMURAFENIB
     Route: 048
  6. GLIPIZIDE. [Concomitant]
     Active Substance: GLIPIZIDE
     Dates: start: 20070508
  7. PROVIGIL [Concomitant]
     Active Substance: MODAFINIL
     Indication: FATIGUE
     Dosage: FREQUENCY: QD
     Dates: start: 20090611
  8. VEMURAFENIB. [Suspect]
     Active Substance: VEMURAFENIB
     Dosage: DOSE MOST RECENT CYCLE: 600 G; TOTAL DOSE: 71520 G; LAST DOSE PRIOR TO SAE ON 29 JUN 09
     Route: 048
     Dates: end: 20090509
  9. JANUVIA [Concomitant]
     Active Substance: SITAGLIPTIN PHOSPHATE
     Dosage: FREQUENCY: QD
     Dates: start: 20070101

REACTIONS (1)
  - Squamous cell carcinoma of skin [Recovering/Resolving]

NARRATIVE: CASE EVENT DATE: 20090629
